FAERS Safety Report 12360238 (Version 1)
Quarter: 2016Q2

REPORT INFORMATION
  Report Type: Spontaneous
  Country: US (occurrence: US)
  Receive Date: 20160512
  Receipt Date: 20160512
  Transmission Date: 20160815
  Serious: Yes (Disabling)
  Sender: FDA-Public Use
  Company Number: US-PFIZER INC-2016162890

PATIENT
  Sex: Male

DRUGS (1)
  1. LYRICA [Suspect]
     Active Substance: PREGABALIN
     Indication: POLYDACTYLY
     Dosage: UNK

REACTIONS (3)
  - Complex regional pain syndrome [Unknown]
  - Condition aggravated [Unknown]
  - Product use issue [Unknown]
